FAERS Safety Report 9114780 (Version 3)
Quarter: 2013Q2

REPORT INFORMATION
  Report Type: Report from Study
  Country: JP (occurrence: JP)
  Receive Date: 20130128
  Receipt Date: 20130515
  Transmission Date: 20140414
  Serious: Yes (Hospitalization)
  Sender: FDA-Public Use
  Company Number: JP-ROCHE-1184459

PATIENT
  Sex: Male
  Weight: 86.08 kg

DRUGS (3)
  1. RANIBIZUMAB [Suspect]
     Indication: AGE-RELATED MACULAR DEGENERATION
     Route: 050
     Dates: start: 20090723
  2. VISUDYNE [Concomitant]
     Route: 065
     Dates: start: 200712
  3. MOXIFLOXACIN HYDROCHLORIDE [Concomitant]
     Indication: AGE-RELATED MACULAR DEGENERATION
     Route: 065
     Dates: start: 200907, end: 200909

REACTIONS (1)
  - Neoplasm malignant [Unknown]
